FAERS Safety Report 19803953 (Version 2)
Quarter: 2021Q3

REPORT INFORMATION
  Report Type: Report from Study
  Country: IT (occurrence: IT)
  Receive Date: 20210908
  Receipt Date: 20210929
  Transmission Date: 20211014
  Serious: Yes (Hospitalization)
  Sender: FDA-Public Use
  Company Number: IT-ACCORD-237815

PATIENT
  Age: 38 Year
  Sex: Male

DRUGS (4)
  1. PLAUNAZIDE [Concomitant]
     Active Substance: HYDROCHLOROTHIAZIDE\OLMESARTAN MEDOXOMIL
     Indication: HYPERTENSION
     Dosage: 20 MG / 25 MG FILM?COATED TABLETS
     Route: 048
  2. ALLOPURINOL. [Suspect]
     Active Substance: ALLOPURINOL
     Indication: HYPERURICAEMIA
     Route: 048
     Dates: start: 20210706, end: 20210801
  3. PIOGLITAZONE/PIOGLITAZONE HYDROCHLORIDE [Concomitant]
     Active Substance: PIOGLITAZONE HYDROCHLORIDE
     Indication: DIABETES MELLITUS
     Route: 048
     Dates: start: 20210706
  4. METFORMIN [Concomitant]
     Active Substance: METFORMIN HYDROCHLORIDE
     Indication: DIABETES MELLITUS
     Route: 048
     Dates: start: 20210706

REACTIONS (5)
  - Pyrexia [Unknown]
  - Erythema [Unknown]
  - Face oedema [Unknown]
  - Hepatic function abnormal [Unknown]
  - Eosinophilia [Unknown]

NARRATIVE: CASE EVENT DATE: 20210727
